FAERS Safety Report 4691793-7 (Version None)
Quarter: 2005Q2

REPORT INFORMATION
  Report Type: 
  Country: None (occurrence: None)
  Receive Date: 20050615
  Receipt Date: 20050615
  Transmission Date: 20051028
  Serious: Yes (Death)
  Sender: FDA-Public Use
  Company Number: None

PATIENT
  Sex: Female
  Weight: 65 kg

DRUGS (1)
  1. GEMCITABINE 1000 MG/M2 IV OVER 30 MIN Q WK X 7 [Suspect]
     Indication: PANCREATIC CARCINOMA
     Dosage: 1000 MG/M2 IV OVER 30 MIN Q WK X 7
     Route: 042
     Dates: start: 20041020, end: 20050612

REACTIONS (7)
  - BLOOD COUNT ABNORMAL [None]
  - DRUG TOXICITY [None]
  - HEPATIC FAILURE [None]
  - LOSS OF CONSCIOUSNESS [None]
  - MALIGNANT NEOPLASM PROGRESSION [None]
  - RESPIRATORY DISTRESS [None]
  - STENT OCCLUSION [None]
